FAERS Safety Report 15725504 (Version 3)
Quarter: 2018Q4

REPORT INFORMATION
  Report Type: Report from Study
  Country: IT (occurrence: IT)
  Receive Date: 20181215
  Receipt Date: 20181228
  Transmission Date: 20190205
  Serious: Yes (Other)
  Sender: FDA-Public Use
  Company Number: IT-ROCHE-2230465

PATIENT
  Age: 65 Year
  Sex: Female

DRUGS (2)
  1. CAPECITABINE. [Suspect]
     Active Substance: CAPECITABINE
     Indication: BREAST CANCER METASTATIC
     Dosage: 1000 MG/M2 IN TWICE DAILY AFTER BREAKFAST AND AFTER DINNER FOR 14 DAYS
     Route: 048
  2. LAPATINIB [Suspect]
     Active Substance: LAPATINIB
     Indication: BREAST CANCER METASTATIC
     Dosage: 1250 MG/DAY IN A FASTING, SINGLE ADMINISTRATION EVERY MORNING CONTINUOUSLY
     Route: 048

REACTIONS (3)
  - Stomatitis [Unknown]
  - Haematotoxicity [Unknown]
  - Diarrhoea [Unknown]
